FAERS Safety Report 9789337 (Version 4)
Quarter: 2014Q1

REPORT INFORMATION
  Report Type: Spontaneous
  Country: BE (occurrence: BE)
  Receive Date: 20131231
  Receipt Date: 20140320
  Transmission Date: 20141002
  Serious: Yes (Hospitalization, Other)
  Sender: FDA-Public Use
  Company Number: BE-JNJFOC-20131108141

PATIENT
  Age: 6 Year
  Sex: Male
  Weight: 25.7 kg

DRUGS (3)
  1. ZYRTEC [Suspect]
     Route: 048
  2. ZYRTEC [Suspect]
     Indication: HYPERSENSITIVITY
     Route: 048
     Dates: start: 20131005, end: 20131011
  3. AVAMYS [Concomitant]
     Indication: HYPERSENSITIVITY
     Route: 065

REACTIONS (3)
  - Eye movement disorder [Not Recovered/Not Resolved]
  - Tic [Recovering/Resolving]
  - Enuresis [Recovered/Resolved]
